FAERS Safety Report 15047783 (Version 4)
Quarter: 2018Q3

REPORT INFORMATION
  Report Type: Report from Study
  Country: None (occurrence: AU)
  Receive Date: 20180621
  Receipt Date: 20180817
  Transmission Date: 20181010
  Serious: Yes (Hospitalization, Other)
  Sender: FDA-Public Use
  Company Number: AU-ABBVIE-18K-008-2394386-00

PATIENT
  Sex: Female

DRUGS (1)
  1. HUMIRA [Suspect]
     Active Substance: ADALIMUMAB
     Indication: PSORIATIC ARTHROPATHY
     Route: 058
     Dates: start: 20180511, end: 20180623

REACTIONS (4)
  - Appendicectomy [Unknown]
  - Renal impairment [Unknown]
  - Surgical failure [Unknown]
  - Pneumothorax [Unknown]

NARRATIVE: CASE EVENT DATE: 2018
